FAERS Safety Report 17125071 (Version 2)
Quarter: 2020Q1

REPORT INFORMATION
  Report Type: Spontaneous
  Country: US (occurrence: US)
  Receive Date: 20191206
  Receipt Date: 20200305
  Transmission Date: 20200409
  Serious: Yes (Other)
  Sender: FDA-Public Use
  Company Number: US-ROCHE-2277994

PATIENT
  Age: 71 Year
  Sex: Female
  Weight: 81.27 kg

DRUGS (3)
  1. HERCEPTIN [Suspect]
     Active Substance: TRASTUZUMAB
     Indication: BREAST CANCER
     Dosage: ONGOING: NO
     Route: 065
     Dates: start: 20181203
  2. HERCEPTIN [Suspect]
     Active Substance: TRASTUZUMAB
     Dosage: TRIPLE DOSE,ONGOING :YES
     Route: 065
     Dates: start: 20190227
  3. TAXOL [Suspect]
     Active Substance: PACLITAXEL
     Indication: BREAST CANCER
     Dosage: ONGOING: NO
     Route: 065
     Dates: start: 20181203

REACTIONS (5)
  - Neuropathy peripheral [Unknown]
  - Pain in extremity [Not Recovered/Not Resolved]
  - Initial insomnia [Not Recovered/Not Resolved]
  - Myalgia [Not Recovered/Not Resolved]
  - Middle insomnia [Not Recovered/Not Resolved]

NARRATIVE: CASE EVENT DATE: 20190228
